FAERS Safety Report 7423045-6 (Version None)
Quarter: 2011Q2

REPORT INFORMATION
  Report Type: 
  Country: None (occurrence: None)
  Receive Date: 20110419
  Receipt Date: 20110408
  Transmission Date: 20111010
  Serious: Yes (Hospitalization)
  Sender: FDA-Public Use
  Company Number: ZA-JNJFOC-20110404854

PATIENT

DRUGS (4)
  1. ITRACONAZOLE [Suspect]
     Indication: FUNGAL INFECTION
     Route: 065
  2. SAQUINAVIR [Interacting]
     Indication: ANTIRETROVIRAL THERAPY
     Route: 065
  3. RITONAVIR [Interacting]
     Indication: ANTIRETROVIRAL THERAPY
     Route: 065
  4. ITRACONAZOLE [Suspect]
     Route: 065

REACTIONS (2)
  - TOXICITY TO VARIOUS AGENTS [None]
  - DRUG INTERACTION [None]
